FAERS Safety Report 12409348 (Version 2)
Quarter: 2016Q2

REPORT INFORMATION
  Report Type: Spontaneous
  Country: US (occurrence: US)
  Receive Date: 20160526
  Receipt Date: 20160609
  Transmission Date: 20160815
  Serious: No
  Sender: FDA-Public Use
  Company Number: US-ALEXION PHARMACEUTICALS INC-A201603700

PATIENT
  Sex: Male

DRUGS (1)
  1. SOLIRIS [Suspect]
     Active Substance: ECULIZUMAB
     Indication: PAROXYSMAL NOCTURNAL HAEMOGLOBINURIA
     Dosage: 900 MG, UNK
     Route: 042
     Dates: end: 20160415

REACTIONS (6)
  - Haemoglobin abnormal [Not Recovered/Not Resolved]
  - Platelet count abnormal [Not Recovered/Not Resolved]
  - White blood cell count abnormal [Not Recovered/Not Resolved]
  - Haematocrit abnormal [Not Recovered/Not Resolved]
  - Mean cell volume abnormal [Not Recovered/Not Resolved]
  - Laboratory test abnormal [Unknown]

NARRATIVE: CASE EVENT DATE: 20160516
